FAERS Safety Report 4323445-7 (Version None)
Quarter: 2004Q1

REPORT INFORMATION
  Report Type: 
  Country: None (occurrence: None)
  Receive Date: 20040325
  Receipt Date: 20031118
  Transmission Date: 20041129
  Serious: Yes (Hospitalization)
  Sender: FDA-Public Use
  Company Number: DE-ROCHE-352165

PATIENT
  Age: 52 Year
  Sex: Male
  Weight: 67 kg

DRUGS (5)
  1. PEG-INTERFERON ALFA 2A (RO 25-8310) [Suspect]
     Route: 058
     Dates: start: 20030917
  2. RIBAVIRIN (NON-ROCHE) [Suspect]
     Route: 048
     Dates: start: 20030917
  3. EPIVIR [Suspect]
     Indication: HIV INFECTION
     Route: 048
     Dates: start: 20000224
  4. VIREAD [Suspect]
     Indication: HIV INFECTION
     Route: 048
     Dates: start: 20030603
  5. KALETRA [Concomitant]
     Indication: HIV INFECTION
     Route: 048
     Dates: start: 20001211

REACTIONS (7)
  - CHEST PAIN [None]
  - CIRCULATORY COLLAPSE [None]
  - ELECTROCARDIOGRAM ST SEGMENT ELEVATION [None]
  - MALAISE [None]
  - OXYGEN SATURATION DECREASED [None]
  - PYREXIA [None]
  - VOMITING [None]
